FAERS Safety Report 5198139-9 (Version None)
Quarter: 2006Q4

REPORT INFORMATION
  Report Type: 
  Country: None (occurrence: None)
  Receive Date: 20061228
  Receipt Date: 20061228
  Transmission Date: 20070319
  Serious: Yes (Hospitalization)
  Sender: FDA-Public Use
  Company Number: None

PATIENT
  Sex: Female
  Weight: 78.6 kg

DRUGS (7)
  1. BLEOMYCIN [Suspect]
     Dosage: 28.2 UNIT (DAY 1 = 9.5U AND DAY 8 - 18.7 U)
  2. CYCLOPHOSPHAMIDE [Suspect]
     Dosage: 1520 MG
  3. DOXORUBICIN HYDROCHLORIDE [Suspect]
     Dosage: 95 MG
  4. ETOPOSIDE [Suspect]
     Dosage: 714 MG
  5. G-CSF (FILGRASTIM, AMGEN) [Suspect]
     Dosage: 1200 MG
  6. PREDNISONE TAB [Suspect]
     Dosage: 525 MG
  7. VINCRISTINE SULFATE [Suspect]
     Dosage: 5.4 MG  DAYS 1 AND 8

REACTIONS (13)
  - ABDOMINAL PAIN [None]
  - ASCITES [None]
  - CAECITIS [None]
  - COLITIS [None]
  - EJECTION FRACTION DECREASED [None]
  - HYPOTENSION [None]
  - ILL-DEFINED DISORDER [None]
  - NEUTROPENIA [None]
  - PLEURAL EFFUSION [None]
  - PYREXIA [None]
  - RESPIRATORY DISORDER [None]
  - TACHYCARDIA [None]
  - VOMITING [None]
